FAERS Safety Report 9252647 (Version 1)
Quarter: 2013Q2

REPORT INFORMATION
  Report Type: Spontaneous
  Country: US (occurrence: US)
  Receive Date: 20130424
  Receipt Date: 20130424
  Transmission Date: 20140414
  Serious: No
  Sender: FDA-Public Use
  Company Number: US-ASTRAZENECA-2013SE23112

PATIENT
  Age: 63 Year
  Sex: Female
  Weight: 59 kg

DRUGS (19)
  1. NEXIUM [Suspect]
     Route: 048
     Dates: end: 201210
  2. NEXIUM [Suspect]
     Dosage: EVERY TWO OR THREE DAYS
     Route: 048
  3. LISINOPRIL [Suspect]
     Indication: BLOOD PRESSURE ABNORMAL
     Route: 048
     Dates: start: 1993
  4. NOVOLOG INSULIN PUMP [Concomitant]
     Indication: DIABETES MELLITUS
     Dates: start: 2003
  5. METFORMIN [Concomitant]
     Indication: DIABETES MELLITUS
     Dates: start: 2008
  6. LIPITOR [Concomitant]
     Indication: BLOOD CHOLESTEROL ABNORMAL
     Dosage: 40MG 5/WK
     Dates: start: 1993
  7. LOVASA [Concomitant]
     Dosage: 2 TABLETS BID
     Dates: start: 2010
  8. RECLAST [Concomitant]
     Indication: OSTEOPOROSIS
     Dosage: YEAR
  9. EFFEXOR [Concomitant]
     Indication: HOT FLUSH
  10. ASPIRIN [Concomitant]
     Indication: ANTIPLATELET THERAPY
     Dates: start: 2006
  11. SYNTHROID [Concomitant]
     Dosage: DAILY
     Dates: start: 2008
  12. CALCIUM SUPPLEMENT [Concomitant]
  13. VITAMIN B6 [Concomitant]
  14. VITAMIN D [Concomitant]
  15. MULTIVITAMIN [Concomitant]
  16. NIACIN [Concomitant]
  17. FOLIC ACID [Concomitant]
  18. OCUVITE [Concomitant]
  19. NASAL SPRAYS [Concomitant]

REACTIONS (3)
  - Hot flush [Not Recovered/Not Resolved]
  - Gastrooesophageal reflux disease [Recovered/Resolved]
  - Intentional drug misuse [Not Recovered/Not Resolved]
